FAERS Safety Report 8531236-6 (Version None)
Quarter: 2012Q3

REPORT INFORMATION
  Report Type: 
  Country: None (occurrence: None)
  Receive Date: 20120723
  Receipt Date: 20120723
  Transmission Date: 20120928
  Serious: Yes (Hospitalization)
  Sender: FDA-Public Use
  Company Number: GB-PFIZER INC-2012158871

PATIENT
  Age: 67 Year
  Sex: Female
  Weight: 69 kg

DRUGS (3)
  1. NORVASC [Suspect]
     Dates: start: 20111001, end: 20120301
  2. BENDROFLUMETHIAZIDE [Concomitant]
     Indication: HYPERTENSION
     Dates: start: 20060101
  3. ESTRADIOL VALERATE [Concomitant]
     Indication: HYSTERECTOMY
     Dosage: STARTED IN THE 1980'S AFTER HYSTERECTOMY.
     Dates: start: 20060101

REACTIONS (8)
  - CHEST PAIN [None]
  - MUSCLE SPASMS [None]
  - MUSCULOSKELETAL PAIN [None]
  - PAIN IN EXTREMITY [None]
  - PALPITATIONS [None]
  - OEDEMA PERIPHERAL [None]
  - DYSPNOEA [None]
  - PARAESTHESIA [None]
